FAERS Safety Report 21877818 (Version 1)
Quarter: 2023Q1

REPORT INFORMATION
  Report Type: Other
  Country: SK (occurrence: SK)
  Receive Date: 20230118
  Receipt Date: 20230118
  Transmission Date: 20230417
  Serious: Yes (Other)
  Sender: FDA-Public Use
  Company Number: SK-BoehringerIngelheim-2023-BI-212331

PATIENT
  Age: 22 Year
  Sex: Female

DRUGS (1)
  1. ALTEPLASE [Suspect]
     Active Substance: ALTEPLASE
     Indication: Cerebrovascular accident
     Route: 065

REACTIONS (2)
  - Atrial septal defect [Recovered/Resolved]
  - Pelvic venous thrombosis [Recovered/Resolved]
